FAERS Safety Report 5862771-7 (Version None)
Quarter: 2008Q3

REPORT INFORMATION
  Report Type: 
  Country: None (occurrence: None)
  Receive Date: 20080818
  Receipt Date: 20080418
  Transmission Date: 20090109
  Serious: No
  Sender: FDA-Public Use
  Company Number: WAES 0804USA04030

PATIENT
  Age: 79 Year
  Sex: Male

DRUGS (5)
  1. JANUVIA [Suspect]
     Indication: TYPE 2 DIABETES MELLITUS
     Dosage: 100 MG/DAILY/PO
     Route: 048
     Dates: start: 20080201, end: 20080415
  2. COZAAR [Concomitant]
  3. MOTRIN [Concomitant]
  4. INDOMETHACIN [Concomitant]
  5. LOVASTATIN [Concomitant]

REACTIONS (6)
  - ARTHRALGIA [None]
  - BLOOD URIC ACID INCREASED [None]
  - ERYTHEMA [None]
  - GAIT DISTURBANCE [None]
  - INSOMNIA [None]
  - JOINT SWELLING [None]
